FAERS Safety Report 7943312-7 (Version None)
Quarter: 2011Q4

REPORT INFORMATION
  Report Type: 
  Country: None (occurrence: None)
  Receive Date: 20111128
  Receipt Date: 20111123
  Transmission Date: 20120403
  Serious: Yes (Life-Threatening, Hospitalization, Other)
  Sender: FDA-Public Use
  Company Number: PHHY2011AU098165

PATIENT
  Sex: Male
  Weight: 101 kg

DRUGS (5)
  1. ACE INHIBITOR NOS [Concomitant]
  2. GLEEVEC [Suspect]
     Indication: CHRONIC MYELOID LEUKAEMIA
     Dosage: 400 MG, DAILY
     Route: 048
     Dates: start: 20090201, end: 20111103
  3. LERCANIDIPINE [Concomitant]
     Indication: HYPERTENSION
     Dosage: 140 MG DAILY
  4. METFORMIN HCL [Concomitant]
     Indication: TYPE 2 DIABETES MELLITUS
     Dosage: 500 MG, BID
  5. PERINDOPRIL ERBUMINE [Concomitant]

REACTIONS (6)
  - CARDIAC OUTPUT DECREASED [None]
  - PERICARDIAL EFFUSION [None]
  - DYSPNOEA EXERTIONAL [None]
  - RENAL IMPAIRMENT [None]
  - DYSPNOEA [None]
  - OEDEMA [None]
